FAERS Safety Report 21792331 (Version 2)
Quarter: 2023Q1

REPORT INFORMATION
  Report Type: Other
  Country: US (occurrence: None)
  Receive Date: 20221229
  Receipt Date: 20230130
  Transmission Date: 20230417
  Serious: Yes (Hospitalization, Other)
  Sender: FDA-Public Use
  Company Number: US-ROCHE-2837505

PATIENT
  Sex: Female

DRUGS (2)
  1. CELLCEPT [Suspect]
     Active Substance: MYCOPHENOLATE MOFETIL
     Indication: Systemic scleroderma
     Dosage: LAST TREATMENT DATE: MAY/2021, 3 TABLET TWICE IN A DAY
     Route: 048
     Dates: start: 202101
  2. CELLCEPT [Suspect]
     Active Substance: MYCOPHENOLATE MOFETIL
     Route: 048

REACTIONS (4)
  - Gastrointestinal motility disorder [Unknown]
  - Dysphagia [Unknown]
  - Illness [Unknown]
  - Off label use [Unknown]
